FAERS Safety Report 16291776 (Version 5)
Quarter: 2022Q3

REPORT INFORMATION
  Report Type: Report from Study
  Country: US (occurrence: None)
  Receive Date: 20190509
  Receipt Date: 20220725
  Transmission Date: 20221027
  Serious: Yes (Hospitalization)
  Sender: FDA-Public Use
  Company Number: US-ROCHE-2237752

PATIENT
  Age: 58 Year
  Sex: Female
  Weight: 92.2 kg

DRUGS (64)
  1. ATEZOLIZUMAB [Suspect]
     Active Substance: ATEZOLIZUMAB
     Indication: Malignant peritoneal neoplasm
     Dosage: ON 17/DEC/2018, SHE RECEIVED THE MOST RECENT DOSE OF BLINDED ATEZOLIZUMAB PRIOR TO AE (ADVERSE EVENT
     Route: 042
     Dates: start: 20181217
  2. PACLITAXEL [Suspect]
     Active Substance: PACLITAXEL
     Indication: Malignant peritoneal neoplasm
     Dosage: ON 17/DEC/2018, SHE RECEIVED THE MOST RECENT DOSE (336 MG) OF PACLITAXEL PRIOR TO AE (ADVERSE EVENT)
     Route: 042
     Dates: start: 20181217
  3. CARBOPLATIN [Suspect]
     Active Substance: CARBOPLATIN
     Indication: Malignant peritoneal neoplasm
     Dosage: ON 17/DEC/2018, SHE RECEIVED THE MOST RECENT DOSE (710 MG) OF CARBOPLATIN PRIOR TO AE (ADVERSE EVENT
     Route: 042
     Dates: start: 20181217
  4. BEVACIZUMAB [Suspect]
     Active Substance: BEVACIZUMAB
     Indication: Malignant peritoneal neoplasm
     Dosage: MOST RECENT DOSE PRIOR TO ADVERSE EVENT: 01/APR/2019 (1390 MG)
     Route: 042
     Dates: start: 20190107
  5. ACETAMINOPHEN [Concomitant]
     Active Substance: ACETAMINOPHEN
     Indication: Headache
     Dates: start: 201305
  6. ACETAMINOPHEN [Concomitant]
     Active Substance: ACETAMINOPHEN
     Indication: Sacroiliitis
     Dates: start: 20190307, end: 20190329
  7. ACETAMINOPHEN [Concomitant]
     Active Substance: ACETAMINOPHEN
     Indication: Spondylitis
  8. ACETAMINOPHEN [Concomitant]
     Active Substance: ACETAMINOPHEN
     Indication: Arthritis
  9. ALBUTEROL [Concomitant]
     Active Substance: ALBUTEROL
     Indication: Asthma
     Dosage: INHALED
     Route: 055
     Dates: start: 201302
  10. ASPIRIN [Concomitant]
     Active Substance: ASPIRIN
     Indication: Prophylaxis
     Dates: start: 201401
  11. ATORVASTATIN [Concomitant]
     Active Substance: ATORVASTATIN
     Indication: Hyperlipidaemia
     Dates: start: 201808
  12. BUDESONIDE [Concomitant]
     Active Substance: BUDESONIDE
     Indication: Asthma
     Dosage: INHALED
     Route: 055
     Dates: start: 201302
  13. BUDESONIDE [Concomitant]
     Active Substance: BUDESONIDE
     Route: 055
     Dates: start: 20190101, end: 20190102
  14. CLOBETASOL [Concomitant]
     Active Substance: CLOBETASOL
     Indication: Psoriasis
     Route: 061
     Dates: start: 20170401
  15. COENZYME Q10 [Concomitant]
     Active Substance: DIETARY SUPPLEMENT\UBIDECARENONE
     Indication: Arthralgia
     Dates: start: 201302
  16. COENZYME Q10 [Concomitant]
     Active Substance: DIETARY SUPPLEMENT\UBIDECARENONE
     Indication: Myalgia
  17. DEXTROMETHORPHAN [Concomitant]
     Active Substance: DEXTROMETHORPHAN
     Indication: Cough
     Dates: start: 20181122
  18. DOCUSATE [Concomitant]
     Active Substance: DOCUSATE
     Indication: Constipation
     Dates: start: 20181108
  19. ENOXAPARIN [Concomitant]
     Active Substance: ENOXAPARIN
     Indication: Thrombosis prophylaxis
     Dates: start: 20181108, end: 20181208
  20. FLECAINIDE [Concomitant]
     Active Substance: FLECAINIDE
     Indication: Ventricular tachycardia
     Dates: start: 20170303
  21. FLECAINIDE [Concomitant]
     Active Substance: FLECAINIDE
     Indication: Supraventricular tachycardia
  22. LORAZEPAM [Concomitant]
     Active Substance: LORAZEPAM
     Indication: Anxiety
     Dates: start: 201302
  23. METOCLOPRAMIDE [Concomitant]
     Active Substance: METOCLOPRAMIDE
     Indication: Prophylaxis of nausea and vomiting
     Dates: start: 20181112, end: 20190422
  24. METOCLOPRAMIDE [Concomitant]
     Active Substance: METOCLOPRAMIDE
     Dates: start: 20181218
  25. MOMETASONE [Concomitant]
     Active Substance: MOMETASONE
     Indication: Psoriasis
     Route: 061
     Dates: start: 20170401
  26. TIOTROPIUM [Concomitant]
     Active Substance: TIOTROPIUM
     Indication: Asthma
     Dates: start: 201302
  27. METOPROLOL [Concomitant]
     Active Substance: METOPROLOL
     Indication: Hypertension
     Dates: start: 20140118, end: 20190703
  28. METOPROLOL [Concomitant]
     Active Substance: METOPROLOL
     Indication: Ventricular tachycardia
  29. METOPROLOL [Concomitant]
     Active Substance: METOPROLOL
     Indication: Supraventricular tachycardia
  30. MELATONIN [Concomitant]
     Active Substance: MELATONIN
     Indication: Insomnia
     Dates: start: 20180401
  31. NORCO [Concomitant]
     Active Substance: ACETAMINOPHEN\HYDROCODONE BITARTRATE
     Indication: Sacroiliitis
     Dates: start: 20141229
  32. REGLAN [Concomitant]
     Active Substance: METOCLOPRAMIDE HYDROCHLORIDE
     Indication: Prophylaxis
     Dates: start: 20181218, end: 20190422
  33. PREPARATION H MAXIMUM STRENGTH PAIN RELIEF [Concomitant]
     Dates: start: 20190110
  34. IBUPROFEN [Concomitant]
     Active Substance: IBUPROFEN
     Dates: start: 20190208
  35. IBUPROFEN [Concomitant]
     Active Substance: IBUPROFEN
     Dates: start: 20190402, end: 20190403
  36. IBUPROFEN [Concomitant]
     Active Substance: IBUPROFEN
     Dates: start: 20190404, end: 20190623
  37. PREDNISONE [Concomitant]
     Active Substance: PREDNISONE
     Route: 048
     Dates: start: 20190303, end: 20190305
  38. AMOXICILLIN [Concomitant]
     Active Substance: AMOXICILLIN
     Dates: start: 20190304, end: 20190309
  39. NORCO [Concomitant]
     Active Substance: ACETAMINOPHEN\HYDROCODONE BITARTRATE
     Dates: start: 20190301, end: 20190329
  40. LIPITOR [Concomitant]
     Active Substance: ATORVASTATIN CALCIUM
     Dates: start: 20190307, end: 20190329
  41. BENADRYL [Concomitant]
     Active Substance: DIPHENHYDRAMINE HYDROCHLORIDE
     Dates: start: 20190328, end: 20190419
  42. EMEND [Concomitant]
     Active Substance: APREPITANT
     Indication: Premedication
     Dates: start: 20181217, end: 20181217
  43. SODIUM CHLORIDE [Concomitant]
     Active Substance: SODIUM CHLORIDE
     Indication: Premedication
     Dates: start: 20181217, end: 20181217
  44. SODIUM CHLORIDE [Concomitant]
     Active Substance: SODIUM CHLORIDE
     Dosage: 1-100 ML
     Dates: start: 20181224, end: 20181224
  45. SODIUM CHLORIDE [Concomitant]
     Active Substance: SODIUM CHLORIDE
     Dates: start: 20181224, end: 20181226
  46. ALOXI [Concomitant]
     Active Substance: PALONOSETRON HYDROCHLORIDE
     Indication: Premedication
     Dates: start: 20181217, end: 20181217
  47. DECADRON [Concomitant]
     Active Substance: DEXAMETHASONE
     Indication: Premedication
     Route: 042
     Dates: start: 20181217, end: 20181217
  48. DECADRON [Concomitant]
     Active Substance: DEXAMETHASONE
     Route: 042
     Dates: start: 20190311, end: 20190311
  49. DECADRON [Concomitant]
     Active Substance: DEXAMETHASONE
     Route: 042
     Dates: start: 20190401, end: 20190401
  50. PEPCID [Concomitant]
     Active Substance: FAMOTIDINE
     Indication: Premedication
     Dates: start: 20181217, end: 20181217
  51. PEPCID [Concomitant]
     Active Substance: FAMOTIDINE
     Indication: Infusion related reaction
  52. BENADRYL INJECTION [Concomitant]
     Indication: Premedication
     Dates: start: 20181217, end: 20181217
  53. SOLU-CORTEF [Concomitant]
     Active Substance: HYDROCORTISONE SODIUM SUCCINATE
     Indication: Infusion related reaction
     Route: 042
     Dates: start: 20181217, end: 20181217
  54. COGENTIN [Concomitant]
     Active Substance: BENZTROPINE MESYLATE
     Indication: Infusion related reaction
     Dates: start: 20181217, end: 20181217
  55. LACTATED RINGERS SOLUTION [Concomitant]
     Active Substance: CALCIUM CHLORIDE\POTASSIUM CHLORIDE\SODIUM CHLORIDE\SODIUM LACTATE
     Dates: start: 20181224, end: 20181224
  56. LACTATED RINGERS SOLUTION [Concomitant]
     Active Substance: CALCIUM CHLORIDE\POTASSIUM CHLORIDE\SODIUM CHLORIDE\SODIUM LACTATE
     Route: 042
     Dates: start: 20181224, end: 20181225
  57. DEXTROSE [Concomitant]
     Active Substance: DEXTROSE
     Dates: start: 20181224, end: 20181226
  58. DEXTROSE [Concomitant]
     Active Substance: DEXTROSE
     Dates: start: 20181224, end: 20181224
  59. DEXTROSE [Concomitant]
     Active Substance: DEXTROSE
     Dates: start: 20181225, end: 20181226
  60. ZOFRAN [Concomitant]
     Active Substance: ONDANSETRON HYDROCHLORIDE
     Dates: start: 20181224, end: 20181224
  61. LOVENOX [Concomitant]
     Active Substance: ENOXAPARIN SODIUM
     Dates: start: 20181224, end: 20181224
  62. DOCUSATE [Concomitant]
     Active Substance: DOCUSATE
     Dates: start: 20181224, end: 20181224
  63. PREDNISONE [Concomitant]
     Active Substance: PREDNISONE
     Indication: Asthma
     Route: 048
     Dates: start: 20180106, end: 20190108
  64. PREDNISONE [Concomitant]
     Active Substance: PREDNISONE
     Route: 048
     Dates: start: 20181231, end: 20190102

REACTIONS (4)
  - Febrile neutropenia [Recovered/Resolved]
  - Pyrexia [Recovered/Resolved]
  - Pyrexia [Recovered/Resolved]
  - Hypertension [Recovered/Resolved]

NARRATIVE: CASE EVENT DATE: 20181219
